FAERS Safety Report 8876026 (Version 1)
Quarter: 2012Q4

REPORT INFORMATION
  Report Type: 
  Country: US (occurrence: US)
  Receive Date: 20121023
  Receipt Date: 20121023
  Transmission Date: 20130627
  Serious: No
  Sender: FDA-Public Use
  Company Number: US-VERTEX PHARMACEUTICAL INC.-2012-023206

PATIENT
  Age: 58 Year
  Sex: Male
  Weight: 50 kg

DRUGS (4)
  1. INCIVEK [Suspect]
     Indication: HEPATITIS C
     Dosage: 750 mg, tid
     Route: 048
     Dates: start: 20120915, end: 20121016
  2. PEGASYS [Suspect]
     Indication: HEPATITIS C
     Dosage: 180 ?g, weekly
     Route: 058
     Dates: start: 20120915, end: 20121006
  3. PEGASYS [Suspect]
     Dosage: 36 ?g, weekly
     Route: 058
     Dates: start: 201210
  4. RIBAVIRIN [Suspect]
     Indication: HEPATITIS C
     Dosage: 1000 mg, qd
     Route: 048
     Dates: start: 20120915, end: 20121016

REACTIONS (2)
  - Dyspnoea [Unknown]
  - Abdominal discomfort [Unknown]
